FAERS Safety Report 10220525 (Version 2)
Quarter: 2014Q2

REPORT INFORMATION
  Report Type: Spontaneous
  Country: CA (occurrence: CA)
  Receive Date: 20140606
  Receipt Date: 20140606
  Transmission Date: 20141212
  Serious: Yes (Other)
  Sender: FDA-Public Use
  Company Number: CA-SHIRE-CA201402373

PATIENT
  Age: 8 Year
  Sex: Female

DRUGS (1)
  1. VYVANSE [Suspect]
     Indication: ATTENTION DEFICIT/HYPERACTIVITY DISORDER
     Dosage: 20 MG, 1X/DAY:QD (IN THE AM)
     Route: 048

REACTIONS (10)
  - Hallucination [Recovered/Resolved]
  - Abnormal behaviour [Recovered/Resolved]
  - Feeling abnormal [Recovered/Resolved]
  - Disturbance in social behaviour [Recovered/Resolved]
  - Flat affect [Recovered/Resolved]
  - Anger [Recovered/Resolved]
  - Somnolence [Recovered/Resolved]
  - Rash pruritic [Recovered/Resolved]
  - Irritability [Recovered/Resolved]
  - Drug ineffective [Recovered/Resolved]
